FAERS Safety Report 6842226-3 (Version None)
Quarter: 2010Q3

REPORT INFORMATION
  Report Type: 
  Country: None (occurrence: None)
  Receive Date: 20100714
  Receipt Date: 20071226
  Transmission Date: 20110219
  Serious: Yes (Hospitalization, Other)
  Sender: FDA-Public Use
  Company Number: US-PFIZER INC-2007061824

PATIENT
  Sex: Male
  Weight: 99.8 kg

DRUGS (6)
  1. CHANTIX [Suspect]
     Indication: CORONARY ARTERY DISEASE
  2. CHANTIX [Suspect]
     Indication: HYPERTENSION
  3. ACETYLSALICYLIC ACID [Concomitant]
  4. CRESTOR [Concomitant]
  5. TOPROL-XL [Concomitant]
  6. BENICAR HCT [Concomitant]

REACTIONS (3)
  - CHEST PAIN [None]
  - HYPERTENSION [None]
  - NERVOUSNESS [None]
